FAERS Safety Report 21043423 (Version 1)
Quarter: 2022Q3

REPORT INFORMATION
  Report Type: Spontaneous
  Country: FR (occurrence: FR)
  Receive Date: 20220705
  Receipt Date: 20220705
  Transmission Date: 20221026
  Serious: Yes (Life-Threatening, Other)
  Sender: FDA-Public Use
  Company Number: None

PATIENT
  Age: 63 Year
  Sex: Female

DRUGS (10)
  1. IBRANCE [Suspect]
     Active Substance: PALBOCICLIB
     Indication: Breast cancer
     Dosage: 1 TABLET OF 125 MG/DAY DURING 21 DAYS, BREAK FOR 7 DAYS THEN RESUMED
     Route: 048
     Dates: start: 20220422, end: 20220518
  2. IBRANCE [Suspect]
     Active Substance: PALBOCICLIB
     Dosage: 1 TABLET OF 100 MG/DAY DURING 21 DAYS, BREAK FOR 7 DAYS THEN RESUMED
     Route: 048
     Dates: start: 20220518
  3. VALPROMIDE [Suspect]
     Active Substance: VALPROMIDE
     Indication: Product used for unknown indication
     Dosage: 300 MG, 1X/DAY (1 TABLET OF 300 MG/DAYS)
     Route: 048
     Dates: start: 20220502, end: 20220602
  4. XGEVA [Concomitant]
     Active Substance: DENOSUMAB
     Indication: Hypocalcaemia
     Dosage: 120 MG/MONTH, IF CALCEMIA CORRECTED } 2.20 MMOL/L
     Route: 058
     Dates: start: 20220515
  5. LETROZOLE [Concomitant]
     Active Substance: LETROZOLE
     Indication: Breast cancer
     Dosage: 1 TABLET OF 2.5 MG A DAY
     Route: 048
  6. CHOLECALCIFEROL [Concomitant]
     Active Substance: CHOLECALCIFEROL
     Indication: Vitamin D deficiency
     Dosage: 50000 IU, MONTHLY (1 VIAL/MONTH)
     Route: 048
  7. CALCIUM CARBONATE [Concomitant]
     Active Substance: CALCIUM CARBONATE
     Indication: Hypocalcaemia
     Dosage: 1 G, 1X/DAY (1 TABLET /DAY)
     Route: 048
     Dates: start: 20220515
  8. MONTMORILLONITE [Concomitant]
     Active Substance: MONTMORILLONITE
     Indication: Diarrhoea
     Dosage: MAX 9 G/DAY
     Route: 048
  9. LOPERAMIDE HYDROCHLORIDE [Concomitant]
     Active Substance: LOPERAMIDE HYDROCHLORIDE
     Indication: Diarrhoea
     Dosage: MAX 16 MG/DAY
     Route: 048
  10. METOCLOPRAMIDE DEHYDROCHOLATE [Concomitant]
     Indication: Prophylaxis of nausea and vomiting
     Dosage: 1 TABLET IF NAUSEA MAX 3/DAY
     Route: 048

REACTIONS (2)
  - Neutropenia [Recovering/Resolving]
  - Neutropenia [Recovering/Resolving]

NARRATIVE: CASE EVENT DATE: 20220505
